FAERS Safety Report 17274439 (Version 1)
Quarter: 2020Q1

REPORT INFORMATION
  Report Type: Spontaneous
  Country: ES (occurrence: ES)
  Receive Date: 20200115
  Receipt Date: 20200115
  Transmission Date: 20200409
  Serious: Yes (Other)
  Sender: FDA-Public Use
  Company Number: ES-MYLANLABS-2020M1004261

PATIENT
  Age: 37 Year
  Sex: Male

DRUGS (3)
  1. TENOFOVIR DISOPROXIL [Suspect]
     Active Substance: TENOFOVIR DISOPROXIL
     Indication: HIV-2 INFECTION
     Dosage: UNK
     Route: 065
  2. RALTEGRAVIR. [Suspect]
     Active Substance: RALTEGRAVIR
     Indication: HIV-2 INFECTION
     Dosage: UNK
     Route: 065
  3. EMTRICITABINE/TENOFOVIR DISOPROXIL FUMARATE [Suspect]
     Active Substance: EMTRICITABINE\TENOFOVIR DISOPROXIL FUMARATE
     Indication: HIV-2 INFECTION
     Dosage: UNK
     Route: 065

REACTIONS (3)
  - Gene mutation [Unknown]
  - Treatment failure [Unknown]
  - Drug resistance [Unknown]
